FAERS Safety Report 10019545 (Version 6)
Quarter: 2016Q2

REPORT INFORMATION
  Report Type: Spontaneous
  Country: US (occurrence: US)
  Receive Date: 20140318
  Receipt Date: 20160518
  Transmission Date: 20160815
  Serious: Yes (Hospitalization, Other)
  Sender: FDA-Public Use
  Company Number: US-MERCK-1403USA005871

PATIENT
  Sex: Female
  Weight: 60.32 kg

DRUGS (3)
  1. FOSAMAX [Suspect]
     Active Substance: ALENDRONATE SODIUM
     Dosage: 70 MG, QW
     Route: 048
     Dates: start: 20061224, end: 200703
  2. FOSAMAX [Suspect]
     Active Substance: ALENDRONATE SODIUM
     Indication: OSTEOPOROSIS
     Dosage: 70 MG, QW
     Route: 048
     Dates: start: 199603, end: 200512
  3. FOSAMAX PLUS D [Suspect]
     Active Substance: ALENDRONATE SODIUM\CHOLECALCIFEROL
     Indication: OSTEOPOROSIS
     Dosage: 70MG/5600IU QW
     Route: 048
     Dates: start: 200505, end: 201002

REACTIONS (14)
  - Femur fracture [Unknown]
  - Pain in extremity [Not Recovered/Not Resolved]
  - Pulmonary hypertension [Unknown]
  - Osteoporosis [Unknown]
  - Chronic myeloid leukaemia [Unknown]
  - Fall [Unknown]
  - Transfusion [Recovering/Resolving]
  - Kyphosis [Unknown]
  - Depression [Unknown]
  - Head injury [Unknown]
  - Cardiac murmur [Unknown]
  - Cellulitis [Unknown]
  - Gait disturbance [Unknown]
  - Rheumatic fever [Unknown]

NARRATIVE: CASE EVENT DATE: 1998
